FAERS Safety Report 5833964-X (Version None)
Quarter: 2008Q3

REPORT INFORMATION
  Report Type: 
  Country: None (occurrence: None)
  Receive Date: 20080731
  Receipt Date: 20080715
  Transmission Date: 20090109
  Serious: Yes (Other)
  Sender: FDA-Public Use
  Company Number: 2008AL002781

PATIENT
  Age: 54 Year
  Sex: Female
  Weight: 68.4932 kg

DRUGS (5)
  1. DIGOXIN [Suspect]
     Indication: CARDIAC FAILURE CONGESTIVE
     Dosage: 250MCG, DAILY, PO
     Route: 048
     Dates: start: 20080309
  2. COREG [Concomitant]
  3. LISINOPRIL [Concomitant]
  4. LASIX [Concomitant]
  5. ASPIRIN [Concomitant]

REACTIONS (6)
  - ASTHENIA [None]
  - CARDIAC FAILURE [None]
  - CONDITION AGGRAVATED [None]
  - NAUSEA [None]
  - PALPITATIONS [None]
  - WEIGHT INCREASED [None]
